FAERS Safety Report 7609807-0 (Version None)
Quarter: 2011Q3

REPORT INFORMATION
  Report Type: 
  Country: None (occurrence: None)
  Receive Date: 20110714
  Receipt Date: 20110712
  Transmission Date: 20111222
  Serious: Yes (Other)
  Sender: FDA-Public Use
  Company Number: US-PFIZER INC-2011157660

PATIENT
  Sex: Female
  Weight: 82.54 kg

DRUGS (3)
  1. ADVIL PM [Suspect]
     Indication: PAIN IN EXTREMITY
     Dosage: 200 MG, 1X/DAY
     Route: 048
     Dates: start: 20110711, end: 20110712
  2. AMLODIPINE [Concomitant]
     Indication: BLOOD PRESSURE ABNORMAL
     Dosage: UNK
  3. HYDROCHLOROTHIAZIDE [Concomitant]
     Indication: BLOOD PRESSURE ABNORMAL
     Dosage: UNK

REACTIONS (6)
  - UNEVALUABLE EVENT [None]
  - RESTLESSNESS [None]
  - ANXIETY [None]
  - INSOMNIA [None]
  - FEELING ABNORMAL [None]
  - DRUG INTOLERANCE [None]
